FAERS Safety Report 9637581 (Version 1)
Quarter: 2013Q4

REPORT INFORMATION
  Report Type: Spontaneous
  Country: GB (occurrence: GB)
  Receive Date: 20131022
  Receipt Date: 20131022
  Transmission Date: 20140711
  Serious: Yes (Other)
  Sender: FDA-Public Use
  Company Number: GB-BAYER-2013-127268

PATIENT
  Sex: Male
  Weight: 80 kg

DRUGS (1)
  1. LEVITRA 10 MG FILM-COATED TABLETS [Suspect]
     Indication: ERECTILE DYSFUNCTION

REACTIONS (2)
  - Muscle spasms [Unknown]
  - Drug ineffective [Unknown]
